FAERS Safety Report 5762449-4 (Version None)
Quarter: 2008Q2

REPORT INFORMATION
  Report Type: 
  Country: None (occurrence: None)
  Receive Date: 20080609
  Receipt Date: 20080606
  Transmission Date: 20081010
  Serious: Yes (Other)
  Sender: FDA-Public Use
  Company Number: A0728786A

PATIENT
  Age: 24 Year
  Sex: Female
  Weight: 96.8 kg

DRUGS (1)
  1. ALLI [Suspect]
     Indication: WEIGHT LOSS DIET
     Route: 048
     Dates: start: 20080513, end: 20080516

REACTIONS (3)
  - DYSPEPSIA [None]
  - HEADACHE [None]
  - VAGINAL HAEMORRHAGE [None]
